FAERS Safety Report 12334249 (Version 1)
Quarter: 2016Q2

REPORT INFORMATION
  Report Type: Spontaneous
  Country: US (occurrence: US)
  Receive Date: 20160504
  Receipt Date: 20160504
  Transmission Date: 20160815
  Serious: Yes (Hospitalization, Other)
  Sender: FDA-Public Use
  Company Number: PHEH2016US009972

PATIENT
  Age: 78 Year
  Sex: Female

DRUGS (3)
  1. AFINITOR [Suspect]
     Active Substance: EVEROLIMUS
     Indication: ENDOMETRIAL CANCER
     Dosage: UNK
     Route: 065
     Dates: start: 201505, end: 201511
  2. LETROZOL [Suspect]
     Active Substance: LETROZOLE
     Dosage: 2.5 MG, QD
     Route: 065
  3. LETROZOL [Suspect]
     Active Substance: LETROZOLE
     Indication: ENDOMETRIAL CANCER
     Dosage: UNK
     Route: 065
     Dates: start: 201505, end: 201511

REACTIONS (28)
  - Rash [Recovering/Resolving]
  - Endometrial cancer [Unknown]
  - Muscle mass [Unknown]
  - Soft tissue necrosis [Unknown]
  - Pain [Unknown]
  - Atrial fibrillation [Unknown]
  - Spinal compression fracture [Unknown]
  - Skin infection [Unknown]
  - Herpes zoster [Recovering/Resolving]
  - Blood alkaline phosphatase increased [Unknown]
  - Abdominal mass [Unknown]
  - Hydronephrosis [Unknown]
  - Skin ulcer [Unknown]
  - Malignant neoplasm progression [Unknown]
  - Back pain [Unknown]
  - Blood pressure decreased [Unknown]
  - Lymphocyte count decreased [Unknown]
  - Product use issue [Unknown]
  - Bone lesion [Unknown]
  - Iron deficiency anaemia [Unknown]
  - Oedema peripheral [Unknown]
  - Ureteric obstruction [Unknown]
  - Carbohydrate antigen 125 increased [Unknown]
  - Cellulitis [Unknown]
  - Hydroureter [Unknown]
  - Metastasis [Unknown]
  - Drug intolerance [Unknown]
  - Abdominal pain [Unknown]

NARRATIVE: CASE EVENT DATE: 20151030
